FAERS Safety Report 9753891 (Version 3)
Quarter: 2015Q3

REPORT INFORMATION
  Report Type: Spontaneous
  Country: US (occurrence: US)
  Receive Date: 20131213
  Receipt Date: 20150805
  Transmission Date: 20151125
  Serious: No
  Sender: FDA-Public Use
  Company Number: US-GILEAD-2010-0027521

PATIENT
  Age: 62 Year
  Sex: Female
  Weight: 64.86 kg

DRUGS (24)
  1. LASIX [Concomitant]
     Active Substance: FUROSEMIDE
  2. PREZISTA [Concomitant]
     Active Substance: DARUNAVIR ETHANOLATE
  3. NASONEX [Concomitant]
     Active Substance: MOMETASONE FUROATE
  4. PRINIVIL [Concomitant]
     Active Substance: LISINOPRIL
  5. INTELENCE [Concomitant]
     Active Substance: ETRAVIRINE
  6. TRUVADA [Concomitant]
     Active Substance: EMTRICITABINE\TENOFOVIR DISOPROXIL FUMARATE
  7. GLIPIZIDE. [Concomitant]
     Active Substance: GLIPIZIDE
  8. MULTIVITAMIN [Concomitant]
     Active Substance: VITAMINS
  9. REVATIO [Concomitant]
     Active Substance: SILDENAFIL CITRATE
  10. SINGULAIR [Concomitant]
     Active Substance: MONTELUKAST SODIUM
  11. SEROQUEL [Concomitant]
     Active Substance: QUETIAPINE FUMARATE
  12. LEXAPRO [Concomitant]
     Active Substance: ESCITALOPRAM OXALATE
  13. LANOXIN [Concomitant]
     Active Substance: DIGOXIN
  14. HYDROCHLOROTHIAZIDE. [Concomitant]
     Active Substance: HYDROCHLOROTHIAZIDE
  15. NORVIR [Concomitant]
     Active Substance: RITONAVIR
  16. CHANTIX [Concomitant]
     Active Substance: VARENICLINE TARTRATE
  17. LETAIRIS [Suspect]
     Active Substance: AMBRISENTAN
     Indication: PULMONARY ARTERIAL HYPERTENSION
     Route: 048
     Dates: start: 20090415, end: 20100303
  18. ISENTRESS [Concomitant]
     Active Substance: RALTEGRAVIR POTASSIUM
  19. ALDACTONE [Concomitant]
     Active Substance: SPIRONOLACTONE
  20. BACTRIM DS [Concomitant]
     Active Substance: SULFAMETHOXAZOLE\TRIMETHOPRIM
  21. PROVENTIL [Concomitant]
     Active Substance: ALBUTEROL
  22. ZITHROMAX [Concomitant]
     Active Substance: AZITHROMYCIN DIHYDRATE
  23. TYLENOL [Concomitant]
     Active Substance: ACETAMINOPHEN
  24. SENNA [Concomitant]
     Active Substance: SENNA LEAF\SENNOSIDES\SENNOSIDES A AND B

REACTIONS (1)
  - Liver function test abnormal [Unknown]
